FAERS Safety Report 6818853-6 (Version None)
Quarter: 2010Q3

REPORT INFORMATION
  Report Type: 
  Country: None (occurrence: None)
  Receive Date: 20100706
  Receipt Date: 20100701
  Transmission Date: 20110219
  Serious: Yes (Other)
  Sender: FDA-Public Use
  Company Number: US-BRISTOL-MYERS SQUIBB COMPANY-14892368

PATIENT
  Age: 61 Year
  Sex: Female

DRUGS (10)
  1. ENTECAVIR [Suspect]
     Indication: HEPATITIS B
     Dosage: LAST DOSING: 12SEP09
     Route: 048
     Dates: start: 20080212
  2. METFORMIN HCL [Concomitant]
     Indication: DIABETES MELLITUS
     Dosage: REDUCED TO 500 BID
     Route: 048
     Dates: start: 19930101
  3. LANTUS [Concomitant]
     Indication: DIABETES MELLITUS
     Dosage: 1 DF=40 UNTIS
     Route: 058
     Dates: start: 20081014
  4. PLAVIX [Concomitant]
     Indication: CEREBROVASCULAR ACCIDENT PROPHYLAXIS
     Dates: start: 20081120
  5. ASPIRIN [Concomitant]
     Indication: CEREBROVASCULAR ACCIDENT PROPHYLAXIS
     Dates: start: 20081120
  6. BENICAR [Concomitant]
     Indication: HYPERTENSION
     Dates: start: 20081120
  7. GLYBURIDE [Concomitant]
     Indication: DIABETES MELLITUS
     Dosage: DRUG WAS HELD
     Dates: start: 20081120
  8. MICARDIS [Concomitant]
     Indication: HYPERTENSION
     Dates: start: 20081202, end: 20090113
  9. LOMOTIL [Concomitant]
     Indication: DIARRHOEA
     Route: 048
     Dates: start: 20090518
  10. AVANDIA [Concomitant]
     Indication: DIABETES MELLITUS
     Dosage: HELD AS OF 21-DEC-2009.
     Route: 048
     Dates: start: 20091210

REACTIONS (2)
  - BLOOD AMYLASE INCREASED [None]
  - PANCREATITIS [None]
